FAERS Safety Report 7449198-1 (Version None)
Quarter: 2011Q2

REPORT INFORMATION
  Report Type: 
  Country: None (occurrence: None)
  Receive Date: 20110502
  Receipt Date: 20110421
  Transmission Date: 20111010
  Serious: Yes (Hospitalization)
  Sender: FDA-Public Use
  Company Number: US-BIOGENIDEC-2010BI026918

PATIENT
  Sex: Male

DRUGS (3)
  1. AVONEX [Suspect]
     Indication: MULTIPLE SCLEROSIS
     Route: 030
     Dates: start: 20060101
  2. METHOTREXATE [Concomitant]
  3. AVONEX [Suspect]
     Route: 030
     Dates: start: 20090901

REACTIONS (5)
  - NERVOUSNESS [None]
  - GRAND MAL CONVULSION [None]
  - FEAR [None]
  - THERAPEUTIC RESPONSE DELAYED [None]
  - MULTIPLE SCLEROSIS [None]
